FAERS Safety Report 5711142-2 (Version None)
Quarter: 2008Q2

REPORT INFORMATION
  Report Type: 
  Country: None (occurrence: None)
  Receive Date: 20080421
  Receipt Date: 20080411
  Transmission Date: 20081010
  Serious: Yes (Life-Threatening, Hospitalization, Other)
  Sender: FDA-Public Use
  Company Number: GB-BAYER-200810954BNE

PATIENT
  Age: 78 Year
  Sex: Female
  Weight: 39 kg

DRUGS (9)
  1. MOXIFLOXACIN HYDROCHLORIDE [Suspect]
     Indication: DRUG USE FOR UNKNOWN INDICATION
     Dates: start: 20080325
  2. ATORVASTATIN [Concomitant]
     Indication: DRUG USE FOR UNKNOWN INDICATION
  3. CITALOPRAM HYDROCHLORIDE [Concomitant]
     Indication: DRUG USE FOR UNKNOWN INDICATION
  4. METFORMIN HCL [Concomitant]
     Indication: DRUG USE FOR UNKNOWN INDICATION
  5. PREDNISOLONE [Concomitant]
     Indication: DRUG USE FOR UNKNOWN INDICATION
  6. QUININE [Concomitant]
     Indication: DRUG USE FOR UNKNOWN INDICATION
  7. ALBUTEROL [Concomitant]
     Indication: DRUG USE FOR UNKNOWN INDICATION
  8. SERETIDE (MICRONISED FLUTICASONE PROPIONATE/SALMETEROL XINAFOATE) [Concomitant]
     Indication: DRUG USE FOR UNKNOWN INDICATION
  9. SPIRIVA [Concomitant]
     Indication: DRUG USE FOR UNKNOWN INDICATION

REACTIONS (1)
  - INTERNATIONAL NORMALISED RATIO INCREASED [None]
